FAERS Safety Report 13697587 (Version 1)
Quarter: 2017Q2

REPORT INFORMATION
  Report Type: Spontaneous
  Country: US (occurrence: US)
  Receive Date: 20170628
  Receipt Date: 20170628
  Transmission Date: 20170830
  Serious: No
  Sender: FDA-Public Use
  Company Number: US-BAYER-2017-115272

PATIENT
  Age: 74 Year
  Sex: Female
  Weight: 81 kg

DRUGS (18)
  1. SIMVASTATIN. [Concomitant]
     Active Substance: SIMVASTATIN
  2. LISINOPRIL. [Concomitant]
     Active Substance: LISINOPRIL
  3. ESTRADIOL. [Concomitant]
     Active Substance: ESTRADIOL
  4. AMLODIPINE BESYLATE. [Concomitant]
     Active Substance: AMLODIPINE BESYLATE
  5. PREGNENOLONE [Concomitant]
     Active Substance: PREGNENOLONE
  6. MIRALAX [Suspect]
     Active Substance: POLYETHYLENE GLYCOL 3350
     Indication: CONSTIPATION PROPHYLAXIS
     Dosage: 1-2 TEASPOONS DAILY DOSE
     Route: 048
     Dates: end: 20170614
  7. RANITIDINE. [Concomitant]
     Active Substance: RANITIDINE
  8. ATENOLOL. [Concomitant]
     Active Substance: ATENOLOL
  9. FLONASE [Concomitant]
     Active Substance: FLUTICASONE PROPIONATE
  10. OMEPRAZOLE. [Concomitant]
     Active Substance: OMEPRAZOLE
  11. SUDAFED [Concomitant]
     Active Substance: PSEUDOEPHEDRINE HYDROCHLORIDE
  12. CALTRATE + D [CALCIUM CARBONATE,COLECALCIFEROL] [Concomitant]
  13. GLUCOSAMINE [Concomitant]
     Active Substance: GLUCOSAMINE
  14. OXYBUTYNIN [Concomitant]
     Active Substance: OXYBUTYNIN
  15. ASPIRIN (E.C.) [ACETYLSALICYLIC ACID] [Concomitant]
     Active Substance: ASPIRIN
  16. GABAPENTIN. [Concomitant]
     Active Substance: GABAPENTIN
  17. HYDROCHLOROTHIAZIDE. [Concomitant]
     Active Substance: HYDROCHLOROTHIAZIDE
  18. TRAMADOL. [Concomitant]
     Active Substance: TRAMADOL

REACTIONS (5)
  - Circumstance or information capable of leading to medication error [Unknown]
  - Diarrhoea [Unknown]
  - Product use issue [Unknown]
  - Abdominal pain upper [Unknown]
  - Underdose [Unknown]
